FAERS Safety Report 7232342-9 (Version None)
Quarter: 2011Q1

REPORT INFORMATION
  Report Type: 
  Country: None (occurrence: None)
  Receive Date: 20110119
  Receipt Date: 20110110
  Transmission Date: 20110831
  Serious: Yes (Death, Hospitalization)
  Sender: FDA-Public Use
  Company Number: FR-AMGEN-FRASP2011002467

PATIENT

DRUGS (1)
  1. ENBREL [Suspect]
     Indication: RHEUMATOID ARTHRITIS
     Dosage: UNK
     Dates: start: 20060101, end: 20090101

REACTIONS (4)
  - LUNG INFILTRATION [None]
  - SMALL CELL LUNG CANCER STAGE UNSPECIFIED [None]
  - PERIPHERAL EMBOLISM [None]
  - CEREBRAL ARTERY EMBOLISM [None]
